FAERS Safety Report 16319877 (Version 2)
Quarter: 2019Q2

REPORT INFORMATION
  Report Type: Spontaneous
  Country: TH (occurrence: TH)
  Receive Date: 20190516
  Receipt Date: 20190516
  Transmission Date: 20190711
  Serious: Yes (Other)
  Sender: FDA-Public Use
  Company Number: PHHY2019TH106733

PATIENT
  Age: 30 Year
  Sex: Female

DRUGS (1)
  1. PREDNISOLONE. [Suspect]
     Active Substance: PREDNISOLONE
     Indication: SYSTEMIC SCLERODERMA
     Dosage: 10 MG, QD
     Route: 065

REACTIONS (5)
  - Product use in unapproved indication [Unknown]
  - Eclampsia [Unknown]
  - Platelet count decreased [Unknown]
  - Maternal exposure during pregnancy [Unknown]
  - Hepatic enzyme increased [Unknown]
